FAERS Safety Report 6004267-8 (Version None)
Quarter: 2008Q4

REPORT INFORMATION
  Report Type: 
  Country: None (occurrence: None)
  Receive Date: 20081215
  Receipt Date: 20081215
  Transmission Date: 20090506
  Serious: Yes (Hospitalization)
  Sender: FDA-Public Use
  Company Number: None

PATIENT
  Sex: Male
  Weight: 77.1115 kg

DRUGS (13)
  1. LYRICA [Suspect]
     Indication: NEURALGIA
     Dosage: 50 MG BID PO
     Route: 048
     Dates: start: 20081022, end: 20081028
  2. PALAPERIDONE [Concomitant]
  3. BENZTROPINE MESYLATE [Concomitant]
  4. CLONAZEPAM [Concomitant]
  5. DIVALPROEX SODIUM [Concomitant]
  6. METFORMIN HCL [Concomitant]
  7. RESTORIL [Concomitant]
  8. LEVOTHYROXINE SODIUM [Concomitant]
  9. ATORVASTATIN CALCIUM [Concomitant]
  10. LACTULOSE CALCIUM [Concomitant]
  11. DOCUSATE CALCIUM [Concomitant]
  12. LISINOPRIL [Concomitant]
  13. ASPIRIN [Concomitant]

REACTIONS (5)
  - AGITATION [None]
  - DELUSION OF GRANDEUR [None]
  - DISEASE RECURRENCE [None]
  - MANIA [None]
  - TANGENTIALITY [None]
